FAERS Safety Report 25139026 (Version 2)
Quarter: 2025Q3

REPORT INFORMATION
  Report Type: Report from Study
  Country: US (occurrence: US)
  Receive Date: 20250331
  Receipt Date: 20250929
  Transmission Date: 20251021
  Serious: Yes (Other)
  Sender: ABBVIE
  Company Number: US-ABBVIE-6198066

PATIENT
  Sex: Female

DRUGS (1)
  1. SKYRIZI [Suspect]
     Active Substance: RISANKIZUMAB-RZAA
     Indication: Psoriasis
     Route: 058
     Dates: start: 20240930

REACTIONS (4)
  - Gallbladder operation [Unknown]
  - Skin exfoliation [Recovering/Resolving]
  - Pain [Recovering/Resolving]
  - Back disorder [Recovering/Resolving]
